FAERS Safety Report 4404883-0 (Version None)
Quarter: 2004Q3

REPORT INFORMATION
  Report Type: 
  Country: None (occurrence: None)
  Receive Date: 20040716
  Receipt Date: 20040702
  Transmission Date: 20050211
  Serious: Yes (Hospitalization, Other)
  Sender: FDA-Public Use
  Company Number: 175874

PATIENT
  Age: 44 Year
  Sex: Female
  Weight: 145 kg

DRUGS (2)
  1. AVONEX [Suspect]
     Indication: MULTIPLE SCLEROSIS
     Dosage: 30 MCG QW IM
     Dates: start: 19990101
  2. METOPROLOL [Concomitant]

REACTIONS (5)
  - BRACHYTHERAPY [None]
  - CORONARY ARTERY RESTENOSIS [None]
  - CORONARY ARTERY THROMBOSIS [None]
  - MEDICAL DEVICE COMPLICATION [None]
  - MYOCARDIAL INFARCTION [None]
